FAERS Safety Report 8815553 (Version 1)
Quarter: 2012Q4

REPORT INFORMATION
  Report Type: 
  Country: CH (occurrence: CH)
  Receive Date: 20120928
  Receipt Date: 20120928
  Transmission Date: 20130627
  Serious: Yes (Hospitalization)
  Sender: FDA-Public Use
  Company Number: PHHY2012CH082991

PATIENT
  Age: 53 Year
  Sex: Female

DRUGS (17)
  1. SANDIMMUN [Suspect]
     Indication: PROPHYLAXIS AGAINST GRAFT VERSUS HOST DISEASE
     Dosage: 250 mg, QD
     Route: 051
     Dates: start: 20120606, end: 20120625
  2. SANDIMMUN NEORAL [Suspect]
     Indication: PROPHYLAXIS AGAINST GRAFT VERSUS HOST DISEASE
     Dosage: 250 mg, BID
     Route: 048
     Dates: start: 20120626
  3. METHOTREXATE [Suspect]
     Indication: PROPHYLAXIS AGAINST GRAFT VERSUS HOST DISEASE
     Dosage: 15 mg/m2, UNK
     Dates: start: 20120608, end: 20120610
  4. ETOPOHIS [Suspect]
     Indication: MYELOPROLIFERATIVE DISORDER
     Dosage: 34 mg/kg, UNK
     Dates: start: 20120603
  5. THYMOGLOBULINE GENZYME [Concomitant]
     Indication: MYELOPROLIFERATIVE DISORDER
  6. STABICILLINE [Concomitant]
     Dosage: 1 DF, QD
     Route: 048
  7. BACTRIM [Concomitant]
     Dosage: 1 DF, QW3
     Route: 048
  8. FLUCONAZOLE [Concomitant]
     Dosage: 400 mg, QW
  9. VALCYTE [Concomitant]
     Dosage: 450 mg, BID
  10. URSOFALK [Concomitant]
     Dosage: 250 mg, TID
  11. LEUCOVORIN [Concomitant]
     Dosage: 15 mg, QW4
  12. PREDNISONE [Concomitant]
     Dosage: 5 mg, QD
  13. NEXIUM [Concomitant]
     Dosage: 40 mg, QD
  14. VI-DE 3 [Concomitant]
     Dosage: 1000 IU, QD
  15. CALCIMAGON-D3 [Concomitant]
     Dosage: 500 mg, QD
  16. MG 5 [Concomitant]
     Dosage: 12 mmol, QD
  17. LACRYCON [Concomitant]
     Dosage: 1 gtt, Q4H

REACTIONS (3)
  - Intracranial pressure increased [Recovering/Resolving]
  - Papilloedema [Recovering/Resolving]
  - Vision blurred [Unknown]
